FAERS Safety Report 4979493-7 (Version None)
Quarter: 2006Q1

REPORT INFORMATION
  Report Type: 
  Country: None (occurrence: None)
  Receive Date: 20060223
  Receipt Date: 20051019
  Transmission Date: 20060701
  Serious: No
  Sender: FDA-Public Use
  Company Number: HQWYE150921OCT05

PATIENT
  Age: 14 Year
  Sex: Female
  Weight: 53.57 kg

DRUGS (2)
  1. EFFEXOR [Suspect]
     Indication: ANXIETY
     Dosage: SEE IMAGE
     Route: 048
     Dates: start: 20051009, end: 20051013
  2. EFFEXOR [Suspect]
     Indication: ANXIETY
     Dosage: SEE IMAGE
     Route: 048
     Dates: start: 20051014

REACTIONS (1)
  - YAWNING [None]
